FAERS Safety Report 11561039 (Version 1)
Quarter: 2015Q3

REPORT INFORMATION
  Report Type: Spontaneous
  Country: US (occurrence: US)
  Receive Date: 20150916
  Receipt Date: 20150916
  Transmission Date: 20151125
  Serious: No
  Sender: FDA-Public Use
  Company Number: US-ELI_LILLY_AND_COMPANY-US200810003659

PATIENT
  Age: 72 Year
  Sex: Female

DRUGS (17)
  1. EFFEXOR [Concomitant]
     Active Substance: VENLAFAXINE HYDROCHLORIDE
  2. TRAMADOL. [Concomitant]
     Active Substance: TRAMADOL
  3. VITAMIN D [Concomitant]
     Active Substance: CHOLECALCIFEROL
  4. OMEPRAZOLE SODIUM [Concomitant]
     Active Substance: OMEPRAZOLE SODIUM
  5. FORTEO [Suspect]
     Active Substance: TERIPARATIDE
     Indication: OSTEOPOROSIS
     Dosage: 20 UG, DAILY (1/D)
     Dates: start: 200704
  6. METOPROLOL [Concomitant]
     Active Substance: METOPROLOL
  7. BABY ASPIRIN [Concomitant]
     Active Substance: ASPIRIN
  8. MIRALAX [Concomitant]
     Active Substance: POLYETHYLENE GLYCOL 3350
  9. TOPROL XL [Concomitant]
     Active Substance: METOPROLOL SUCCINATE
  10. VITAMIN C [Concomitant]
     Active Substance: ASCORBIC ACID
  11. XALATAN [Concomitant]
     Active Substance: LATANOPROST
  12. SOY ISOFLAVONES [Concomitant]
     Active Substance: SOY ISOFLAVONES
  13. ALPRAZOLAM. [Concomitant]
     Active Substance: ALPRAZOLAM
  14. BENAZEPRIL [Concomitant]
     Active Substance: BENAZEPRIL HYDROCHLORIDE
  15. BETOPIC [Concomitant]
  16. CALCIUM WITH VITAMIN D [Concomitant]
     Active Substance: CALCIUM\VITAMIN D
  17. VYTORIN [Concomitant]
     Active Substance: EZETIMIBE\SIMVASTATIN

REACTIONS (5)
  - Fall [Recovered/Resolved]
  - Constipation [Not Recovered/Not Resolved]
  - Wrist fracture [Recovering/Resolving]
  - Injection site laceration [Not Recovered/Not Resolved]
  - Heart rate increased [Unknown]

NARRATIVE: CASE EVENT DATE: 200704
